FAERS Safety Report 23586496 (Version 1)
Quarter: 2024Q1

REPORT INFORMATION
  Report Type: Spontaneous
  Country: NL (occurrence: NL)
  Receive Date: 20240301
  Receipt Date: 20240301
  Transmission Date: 20240410
  Serious: Yes (Other)
  Sender: FDA-Public Use
  Company Number: None

PATIENT
  Age: 15 Year
  Sex: Female
  Weight: 62 kg

DRUGS (14)
  1. PREDNISOLONE [Suspect]
     Active Substance: PREDNISOLONE
     Indication: Product used for unknown indication
     Dosage: 1 TABLET WHEN NEEDED , PREDNISOLON , BRAND NAME NOT SPECIFIED
     Route: 065
     Dates: start: 2019
  2. PREDNISOLONE [Suspect]
     Active Substance: PREDNISOLONE
     Indication: Product used for unknown indication
     Dosage: 1 TABLET WHEN NEEDED ,/ BRAND NAME NOT SPECIFIED
     Route: 065
     Dates: start: 2019
  3. BUDESONIDE [Suspect]
     Active Substance: BUDESONIDE
     Indication: Asthma
     Dosage: 2 TIMES A DAY 1-2 INHALES ,  INHALATION POWDER 200UG/DO / BRAND NAME NOT SPECIFIED
     Route: 065
     Dates: end: 2018
  4. BUDESONIDE [Suspect]
     Active Substance: BUDESONIDE
     Indication: Asthma
     Dosage: 1-2 TIMES A DAY 1 DOSE , NOSE SPRAY 64UG/DO - NON-CURRENT DRUG / BRAND NAME NOT SPECIFIED
     Route: 065
     Dates: end: 2018
  5. ALVESCO [Suspect]
     Active Substance: CICLESONIDE
     Indication: Asthma
     Dosage: 2 TIMES A DAY 1 INHALE , AEROSOL 160UG/DO / 160 AEROSOL 160MCG/DO SPBS 60DO + INH
     Route: 055
     Dates: end: 2019
  6. PROTOPIC [Concomitant]
     Active Substance: TACROLIMUS
     Indication: Product used for unknown indication
     Dosage: ONLY SHORT IN FACE, 0.3MG/G / TACROLIMUS OINTMENT 0.3MG/G /
     Route: 065
     Dates: end: 2018
  7. CUTIVATE [Suspect]
     Active Substance: FLUTICASONE PROPIONATE
     Indication: Eczema
     Dosage: FACE IF NECESSARY, HYDROPHOBIC OINTMENT 0.05MG/G / FLUTICASON OINTMENT 0.05MG/G /
     Route: 065
     Dates: start: 20180820, end: 20210918
  8. FLUTICASONE PROPIONATE [Suspect]
     Active Substance: FLUTICASONE PROPIONATE
     Indication: Sinusitis
     Dosage: ONCE A DAY ,  NOSE SPRAY 50UG/DO / BRAND NAME NOT SPECIFIED
     Route: 065
     Dates: start: 2020
  9. TRIAMCINOLONE ACETONIDE [Suspect]
     Active Substance: TRIAMCINOLONE ACETONIDE
     Indication: Eczema
     Dosage: CREAM 1MG/G / BRAND NAME NOT SPECIFIED
     Route: 065
     Dates: start: 2017, end: 20210918
  10. BETAMETHASONE [Suspect]
     Active Substance: BETAMETHASONE\BETAMETHASONE DIPROPIONATE
     Indication: Eczema
     Dosage: BRAND NAME NOT SPECIFIED
     Route: 065
     Dates: end: 20210918
  11. ELIDEL [Concomitant]
     Active Substance: PIMECROLIMUS
     Indication: Product used for unknown indication
     Dosage: ONLY SHORT IN FACE, 10MG/G / PIMECROLIMUS CREME 10MG/G
     Route: 065
     Dates: end: 2018
  12. DEXAMETHASONE\TOBRAMYCIN [Suspect]
     Active Substance: DEXAMETHASONE\TOBRAMYCIN
     Indication: Product used for unknown indication
     Dosage: 1/3MG/ML / BRAND NAME NOT SPECIFIED, EYEDR
     Route: 065
     Dates: end: 2018
  13. EBASTINE [Concomitant]
     Active Substance: EBASTINE
     Indication: Product used for unknown indication
     Dosage: TABLET, 5 MG (MILLIGRAM) , TABLET FILM COVER 5MG / DESLORATADINE TABLET 5MG /
     Route: 065
  14. ALVESCO [Suspect]
     Active Substance: CICLESONIDE
     Indication: Asthma
     Dosage: 2 TIMES A DAY 1 INHALE , 160 AEROSOL 160MCG/DO SPBS 60DO + INH / CICLESONIDE AEROSOL 160UG/DO /
     Route: 055
     Dates: end: 2019

REACTIONS (10)
  - Steroid withdrawal syndrome [Recovering/Resolving]
  - Hypotension [Recovering/Resolving]
  - Skin exfoliation [Recovering/Resolving]
  - Adrenal disorder [Recovering/Resolving]
  - Fatigue [Recovering/Resolving]
  - Skin swelling [Recovering/Resolving]
  - Dry skin [Recovering/Resolving]
  - Poor quality sleep [Recovering/Resolving]
  - Temperature regulation disorder [Unknown]
  - Erythema [Recovering/Resolving]
